FAERS Safety Report 23960603 (Version 3)
Quarter: 2025Q3

REPORT INFORMATION
  Report Type: Spontaneous
  Country: EU (occurrence: EU)
  Receive Date: 20240611
  Receipt Date: 20250812
  Transmission Date: 20251020
  Serious: Yes (Hospitalization, Other)
  Sender: PFIZER
  Company Number: EU-002147023-NVSC2024RO112309

PATIENT
  Age: 63 Year
  Sex: Male

DRUGS (21)
  1. BOSUTINIB [Suspect]
     Active Substance: BOSUTINIB
     Route: 065
     Dates: start: 202302, end: 202304
  2. HYDREA [Suspect]
     Active Substance: HYDROXYUREA
     Route: 065
     Dates: start: 202305, end: 202401
  3. TASIGNA [Suspect]
     Active Substance: NILOTINIB
     Indication: Chronic myeloid leukaemia
     Dosage: 300 MG, 2X/DAY
     Route: 048
     Dates: start: 20221001, end: 20221130
  4. TASIGNA [Suspect]
     Active Substance: NILOTINIB
     Dosage: 200 MG, 2X/DAY
     Route: 048
     Dates: start: 20221201, end: 20230131
  5. ASCIMINIB [Suspect]
     Active Substance: ASCIMINIB
     Dosage: 40 MG, 2X/DAY
     Route: 065
     Dates: start: 202402
  6. ENALAPRIL [Concomitant]
     Active Substance: ENALAPRIL
     Dosage: 10 MG, 2X/DAY (AT 8 O^CLOCK AND 20 O^CLOCK)
     Route: 048
     Dates: start: 20221001, end: 20230131
  7. METOPROLOL [Concomitant]
     Active Substance: METOPROLOL
     Dosage: 50 MG, 2X/DAY (2 X 25 MG, (AT 8 O^CLOCK AND 20 O^CLOCK)
     Route: 048
     Dates: start: 20221001, end: 20230131
  8. CEFTAZIDIME [Concomitant]
     Active Substance: CEFTAZIDIME
     Route: 042
     Dates: start: 20221018, end: 20221024
  9. FAMOTIDINE [Concomitant]
     Active Substance: FAMOTIDINE
     Dosage: 40 MG, 1X/DAY (AT 9 ^O CLOCK)
     Route: 048
     Dates: start: 20221001, end: 20221101
  10. PREDNISONE [Concomitant]
     Active Substance: PREDNISONE
     Dosage: 25 MG, 1X/DAY (AT 10 ^O CLOCK)
     Route: 048
     Dates: start: 20221101, end: 20221107
  11. PREDNISONE [Concomitant]
     Active Substance: PREDNISONE
     Dosage: 20 MG, 1X/DAY (AT 10 ^O CLOCK)
     Route: 048
     Dates: start: 20221108, end: 20221114
  12. PREDNISONE [Concomitant]
     Active Substance: PREDNISONE
     Dosage: 15 MG, 1X/DAY (AT 10 ^O CLOCK)
     Route: 048
     Dates: start: 20221115, end: 20221121
  13. PREDNISONE [Concomitant]
     Active Substance: PREDNISONE
     Dosage: 15 MG, 1X/DAY (AT 10 ^O CLOCK)
     Route: 048
     Dates: start: 20221122, end: 20221204
  14. SOLU-MEDROL [Concomitant]
     Active Substance: METHYLPREDNISOLONE SODIUM SUCCINATE
     Dosage: 25 MG, 1X/DAY (10 O^CLOCK)
     Route: 042
     Dates: start: 20221026, end: 20221101
  15. FUROSEMIDE [Concomitant]
     Active Substance: FUROSEMIDE
     Dosage: 40 MG, 1X/DAY (AT 8 O^CLOCK)
     Route: 048
     Dates: start: 20221001, end: 20230131
  16. FUROSEMIDE [Concomitant]
     Active Substance: FUROSEMIDE
     Dosage: 40 MG, 1X/DAY (VIAL)
     Route: 042
     Dates: start: 20221018, end: 20221031
  17. HIDROCORTIZON HEMISUCCINAT [Concomitant]
     Dosage: 100 MG, 1X/DAY (AT 10 O^CLOCK)
     Route: 042
     Dates: start: 20221018, end: 20221025
  18. AMLODIPINE [Concomitant]
     Active Substance: AMLODIPINE BESYLATE
     Dosage: 20 MG, 2X/DAY (2 X 10 MG, (AT 8 O^CLOCK AND 20 O^CLOCK))
     Route: 065
     Dates: start: 202001
  19. OMEPRAZOLE [Concomitant]
     Active Substance: OMEPRAZOLE
     Dosage: 20 MG, 1X/DAY  (AT 9 O^CLOCK)
     Route: 048
     Dates: start: 20221102, end: 20221204
  20. FUROSEMID LPH [Concomitant]
     Dosage: 40 MG, 1X/DAY (AT 8 ^O CLOCK)
     Route: 048
     Dates: start: 20221001, end: 20230131
  21. FUROSEMID LPH [Concomitant]
     Dosage: 40 MG, 1X/DAY (VIAL)
     Route: 042
     Dates: start: 20221018, end: 20221031

REACTIONS (8)
  - Pleurisy [Recovered/Resolved]
  - Cardiac failure [Recovered/Resolved]
  - Cardiac failure [Unknown]
  - Thrombocytopenia [Recovered/Resolved]
  - Pancytopenia [Recovered/Resolved]
  - Anaemia [Recovered/Resolved]
  - Febrile neutropenia [Recovered/Resolved]
  - Ventricular extrasystoles [Recovered/Resolved]

NARRATIVE: CASE EVENT DATE: 20221115
